FAERS Safety Report 21373172 (Version 1)
Quarter: 2022Q3

REPORT INFORMATION
  Report Type: Spontaneous
  Country: US (occurrence: US)
  Receive Date: 20220924
  Receipt Date: 20220924
  Transmission Date: 20221027
  Serious: No
  Sender: FDA-Public Use
  Company Number: US-CTI BIOPHARMA-2022US02947

PATIENT
  Age: 62 Year
  Sex: Female
  Weight: 61.23 kg

DRUGS (12)
  1. VONJO [Suspect]
     Active Substance: PACRITINIB
     Indication: Myeloproliferative neoplasm
     Dosage: 200 MILLIGRAM, BID
     Route: 048
     Dates: start: 202207, end: 20220805
  2. JAKAFI [Concomitant]
     Active Substance: RUXOLITINIB
     Indication: Product used for unknown indication
  3. LYSINE [Concomitant]
     Active Substance: LYSINE
     Indication: Product used for unknown indication
  4. BIOTIN [Concomitant]
     Active Substance: BIOTIN
     Indication: Product used for unknown indication
  5. LEVOTHYROXINE SODIUM [Concomitant]
     Active Substance: LEVOTHYROXINE SODIUM
     Indication: Product used for unknown indication
  6. MAGNESIUM OXIDE [Concomitant]
     Active Substance: MAGNESIUM OXIDE
     Indication: Product used for unknown indication
  7. VITAMIN B12 [Concomitant]
     Active Substance: CYANOCOBALAMIN
     Indication: Product used for unknown indication
  8. TURMERIC + [Concomitant]
     Indication: Product used for unknown indication
  9. VITAMIN C [Concomitant]
     Active Substance: ASCORBIC ACID
     Indication: Product used for unknown indication
  10. VITAMIN D3 [Concomitant]
     Active Substance: CHOLECALCIFEROL
     Indication: Product used for unknown indication
  11. ASCORBIC ACID\ZINC [Concomitant]
     Active Substance: ASCORBIC ACID\ZINC
     Indication: Product used for unknown indication
  12. ALEGRA [Concomitant]
     Indication: Product used for unknown indication

REACTIONS (6)
  - Throat irritation [Unknown]
  - Weight decreased [Recovering/Resolving]
  - Cough [Recovering/Resolving]
  - Nausea [Recovering/Resolving]
  - Dyspnoea [Recovering/Resolving]
  - Diarrhoea [Recovering/Resolving]

NARRATIVE: CASE EVENT DATE: 20220701
